FAERS Safety Report 10583793 (Version 5)
Quarter: 2017Q3

REPORT INFORMATION
  Report Type: Report from Study
  Country: JP (occurrence: JP)
  Receive Date: 20141114
  Receipt Date: 20170715
  Transmission Date: 20171127
  Serious: Yes (Life-Threatening)
  Sender: FDA-Public Use
  Company Number: JP-AMGEN-JPNSP2014081693

PATIENT
  Age: 66 Year
  Sex: Female
  Weight: 42 kg

DRUGS (28)
  1. ROMIPLOSTIM [Suspect]
     Active Substance: ROMIPLOSTIM
     Dosage: 85 MUG/KG, QD
     Route: 058
     Dates: start: 20140401
  2. UFT [Suspect]
     Active Substance: TEGAFUR\URACIL
     Indication: COLON CANCER
     Dosage: 200 MG, BID
     Route: 048
     Dates: start: 20131106, end: 20131106
  3. PREDNISOLONE. [Concomitant]
     Active Substance: PREDNISOLONE
     Indication: IMMUNE THROMBOCYTOPENIC PURPURA
     Dosage: 1 MG, BID
     Route: 065
     Dates: end: 20140325
  4. MIYA-BM [Concomitant]
     Active Substance: CLOSTRIDIUM BUTYRICUM SPORES STRAIN M-55
     Indication: PROPHYLAXIS
     Dosage: UNK
     Route: 048
  5. MAGMITT [Concomitant]
     Active Substance: MAGNESIUM OXIDE
     Indication: PROPHYLAXIS
     Dosage: UNK
     Route: 048
  6. UFT [Suspect]
     Active Substance: TEGAFUR\URACIL
     Dosage: 200 MG, BID
     Route: 048
     Dates: start: 20131113, end: 20131231
  7. 5-FU [Suspect]
     Active Substance: FLUOROURACIL
     Indication: COLON CANCER
     Dosage: 800 MG, Q2WK
     Route: 041
     Dates: start: 20131113
  8. PREDONINE [Concomitant]
     Active Substance: PREDNISOLONE
     Dosage: 12.5 MG, QD
     Route: 048
     Dates: start: 20131210, end: 20140120
  9. PROMAC D [Concomitant]
     Active Substance: POLAPREZINC
     Indication: PROPHYLAXIS
     Dosage: UNK
     Route: 048
  10. PREDONINE [Concomitant]
     Active Substance: PREDNISOLONE
     Indication: IMMUNE THROMBOCYTOPENIC PURPURA
     Dosage: 5 MG, QD
     Route: 065
  11. PREDONINE [Concomitant]
     Active Substance: PREDNISOLONE
     Dosage: 20 MG, QD
     Route: 048
     Dates: start: 20130912, end: 20131118
  12. PREDNISOLONE. [Concomitant]
     Active Substance: PREDNISOLONE
     Dosage: 8 MG, QD
     Route: 048
     Dates: start: 20140218, end: 20140317
  13. REVOLADE [Concomitant]
     Active Substance: ELTROMBOPAG
     Indication: IMMUNE THROMBOCYTOPENIC PURPURA
     Dosage: 50 MG, UNK
     Route: 048
     Dates: start: 20130808
  14. NORVASC [Concomitant]
     Active Substance: AMLODIPINE BESYLATE
     Indication: HYPERTENSION
     Dosage: UNK
     Route: 048
  15. UFT [Suspect]
     Active Substance: TEGAFUR\URACIL
     Dosage: 200 MG, BID
     Route: 048
     Dates: start: 20140108, end: 20140212
  16. PREDONINE [Concomitant]
     Active Substance: PREDNISOLONE
     Dosage: 10 MG, QD
     Route: 048
     Dates: start: 20140604
  17. AZULENE-GLUTAMINE [Concomitant]
     Indication: PROPHYLAXIS
     Dosage: UNK
     Route: 048
  18. ALTAT [Concomitant]
     Active Substance: ROXATIDINE ACETATE HYDROCHLORIDE
     Indication: PROPHYLAXIS
     Dosage: UNK
     Route: 048
  19. PREDONINE [Concomitant]
     Active Substance: PREDNISOLONE
     Dosage: 15 MG, QD
     Route: 048
     Dates: start: 20140508, end: 20140603
  20. PREDNISOLONE. [Concomitant]
     Active Substance: PREDNISOLONE
     Dosage: 7 MG, QD
     Route: 048
     Dates: start: 20140318
  21. NASEA [Concomitant]
     Active Substance: RAMOSETRON HYDROCHLORIDE
     Indication: PROPHYLAXIS
     Dosage: UNK
     Route: 048
  22. ROMIPLOSTIM [Suspect]
     Active Substance: ROMIPLOSTIM
     Indication: IMMUNE THROMBOCYTOPENIC PURPURA
     Dosage: 4 MUG/KG, QWK
     Route: 058
     Dates: start: 20130924
  23. UFT [Suspect]
     Active Substance: TEGAFUR\URACIL
     Dosage: 200 MG, BID
     Route: 048
     Dates: start: 20140219
  24. PREDONINE [Concomitant]
     Active Substance: PREDNISOLONE
     Dosage: 15 MG, QD
     Route: 048
     Dates: start: 20131119, end: 20131209
  25. PREDONINE [Concomitant]
     Active Substance: PREDNISOLONE
     Dosage: 10 MG, QD
     Route: 048
     Dates: start: 20140121, end: 20140217
  26. PREDONINE [Concomitant]
     Active Substance: PREDNISOLONE
     Dosage: 5 MG, QD
     Route: 048
     Dates: start: 20140219, end: 20140507
  27. BERIZYM [Concomitant]
     Active Substance: CELLULASE\DIASTASE\LIPASE
     Indication: PROPHYLAXIS
     Dosage: UNK
     Route: 048
  28. D ALFA [Concomitant]
     Active Substance: ALFACALCIDOL
     Indication: PROPHYLAXIS
     Dosage: UNK
     Route: 048

REACTIONS (3)
  - Anaemia [Not Recovered/Not Resolved]
  - Subclavian vein thrombosis [Recovering/Resolving]
  - White blood cell count decreased [Recovering/Resolving]

NARRATIVE: CASE EVENT DATE: 20140129
